FAERS Safety Report 9095692 (Version 2)
Quarter: 2013Q1

REPORT INFORMATION
  Report Type: Spontaneous
  Country: US (occurrence: US)
  Receive Date: 20130219
  Receipt Date: 20130327
  Transmission Date: 20140127
  Serious: Yes (Other)
  Sender: FDA-Public Use
  Company Number: US-FRI-1000042649

PATIENT
  Age: 67 None
  Sex: Female

DRUGS (11)
  1. VIIBRYD [Suspect]
     Indication: FIBROMYALGIA
     Dosage: 10MG
     Route: 048
     Dates: start: 20130122, end: 20130128
  2. VIIBRYD [Suspect]
     Dosage: 20MG
     Route: 048
     Dates: start: 20130129, end: 20130204
  3. VIIBRYD [Suspect]
     Dosage: 40MG
     Route: 048
     Dates: start: 20130205, end: 20130209
  4. GABAPENTIN [Concomitant]
     Indication: INSOMNIA
     Dosage: 300MG AS NEEDED
  5. HYDROCODONE [Concomitant]
     Indication: PAIN
     Dosage: 5/500MG DAILY
  6. SYMBICORT [Concomitant]
     Indication: CHRONIC OBSTRUCTIVE PULMONARY DISEASE
     Dosage: 320MG
  7. METFORMIN [Concomitant]
     Indication: DIABETES MELLITUS
     Dosage: 2000MG
  8. DICLOFENAC [Concomitant]
     Indication: OSTEOPOROSIS
     Dosage: 75MG
  9. TRIAMTERENE [Concomitant]
     Indication: DIURETIC THERAPY
     Dosage: 37.5MG AS NEEDED
  10. LIPITOR [Concomitant]
     Indication: BLOOD CHOLESTEROL INCREASED
     Dosage: 20MG
  11. TOVIAZ [Concomitant]
     Indication: HYPERTONIC BLADDER
     Dosage: 4MG

REACTIONS (5)
  - Vaginal haemorrhage [Recovered/Resolved]
  - Rash maculo-papular [Recovered/Resolved]
  - Blood urine present [Recovered/Resolved]
  - Diarrhoea [Recovered/Resolved]
  - Off label use [Recovered/Resolved]
